FAERS Safety Report 11151898 (Version 1)
Quarter: 2015Q2

REPORT INFORMATION
  Report Type: Spontaneous
  Country: US (occurrence: None)
  Receive Date: 20150528
  Receipt Date: 20150528
  Transmission Date: 20150821
  Serious: Yes (Other)
  Sender: FDA-Public Use
  Company Number: 2015SCAL000226

PATIENT
  Age: 68 Year
  Sex: Male

DRUGS (2)
  1. BROMPERIDOL [Suspect]
     Active Substance: BROMPERIDOL
     Indication: PSYCHOTIC DISORDER
  2. DONEPEZIL HYDROCHLORIDE (DONEPEZIL HYDROCHLORIDE) UNKNOWN [Suspect]
     Active Substance: DONEPEZIL HYDROCHLORIDE
     Indication: DEMENTIA ALZHEIMER^S TYPE

REACTIONS (2)
  - Drug interaction [None]
  - Neuroleptic malignant syndrome [None]
